FAERS Safety Report 4992575-9 (Version None)
Quarter: 2006Q1

REPORT INFORMATION
  Report Type: 
  Country: None (occurrence: None)
  Receive Date: 20060315
  Receipt Date: 20051006
  Transmission Date: 20060701
  Serious: Yes (Hospitalization)
  Sender: FDA-Public Use
  Company Number: USA0510110332

PATIENT
  Sex: Male

DRUGS (1)
  1. GEMZAR [Suspect]
     Dates: start: 20050824

REACTIONS (2)
  - CHILLS [None]
  - PYREXIA [None]
